FAERS Safety Report 6303770-0 (Version None)
Quarter: 2009Q3

REPORT INFORMATION
  Report Type: 
  Country: None (occurrence: None)
  Receive Date: 20090805
  Receipt Date: 20090720
  Transmission Date: 20100115
  Serious: Yes (Hospitalization)
  Sender: FDA-Public Use
  Company Number: 2009002197

PATIENT
  Age: 68 Year
  Sex: Male

DRUGS (1)
  1. TARCEVA [Suspect]
     Indication: NON-SMALL CELL LUNG CANCER
     Dosage: (150 MG, QD), ORAL
     Route: 048

REACTIONS (5)
  - BRONCHOPULMONARY ASPERGILLOSIS [None]
  - LUNG INFILTRATION [None]
  - PNEUMONITIS [None]
  - PULMONARY EMBOLISM [None]
  - SEPSIS [None]
